FAERS Safety Report 11300787 (Version 1)
Quarter: 2015Q3

REPORT INFORMATION
  Report Type: Spontaneous
  Country: US (occurrence: None)
  Receive Date: 20150723
  Receipt Date: 20150723
  Transmission Date: 20151125
  Serious: No
  Sender: FDA-Public Use
  Company Number: None

PATIENT
  Age: 27 Year
  Sex: Female
  Weight: 62.6 kg

DRUGS (1)
  1. XULANE [Suspect]
     Active Substance: ETHINYL ESTRADIOL\NORELGESTROMIN
     Indication: MENSTRUATION IRREGULAR
     Dosage: 150-35 MCG TD PATCH 1X WK PATCH
     Dates: start: 201505

REACTIONS (2)
  - Treatment failure [None]
  - Product adhesion issue [None]

NARRATIVE: CASE EVENT DATE: 20150513
